FAERS Safety Report 7835345-6 (Version None)
Quarter: 2011Q4

REPORT INFORMATION
  Report Type: 
  Country: None (occurrence: None)
  Receive Date: 20111024
  Receipt Date: 20111019
  Transmission Date: 20120403
  Serious: Yes (Death, Other)
  Sender: FDA-Public Use
  Company Number: US-AMGEN-USASP2011045838

PATIENT
  Age: 90 Year
  Sex: Male
  Weight: 82.086 kg

DRUGS (23)
  1. NPLATE [Suspect]
     Indication: IDIOPATHIC THROMBOCYTOPENIC PURPURA
     Dosage: 5 MUG/KG, QWK
     Route: 058
     Dates: start: 20110719, end: 20110823
  2. GABAPENTIN [Concomitant]
     Dosage: 300 MG, QD
     Route: 048
  3. MULTIVITAMINS WITH IRON            /01824901/ [Concomitant]
     Dosage: UNK UNK, QD
     Route: 048
  4. DEXAMETHASONE [Concomitant]
     Dosage: 4 MG, QD
     Route: 048
  5. ASPIRIN [Concomitant]
     Dosage: 81 MG, QD
     Route: 048
  6. SODIUM CHLORIDE [Concomitant]
  7. ZOCOR [Concomitant]
     Dosage: 40 MG, QD
     Route: 048
  8. ARICEPT [Concomitant]
     Dosage: 10 MG, UNK
  9. AMBIEN [Concomitant]
     Dosage: 5 MG, QD
     Route: 048
  10. KLOR-CON [Concomitant]
     Dosage: 10 MEQ, UNK
     Route: 048
  11. AZITHROMYCIN [Concomitant]
     Dosage: 500 MG, QD
     Route: 048
  12. SEROQUEL [Concomitant]
     Dosage: 50 MG, QD
     Route: 048
  13. PRILOSEC [Concomitant]
     Dosage: 20 MG, QD
     Route: 048
  14. LISINOPRIL [Concomitant]
     Dosage: 40 MG, UNK
     Route: 048
  15. MILK OF MAGNESIA TAB [Concomitant]
     Dosage: UNK UNK, PRN
     Route: 048
  16. NORVASC [Concomitant]
     Dosage: 5 MG, QD
     Route: 048
  17. BENADRYL [Concomitant]
     Indication: PROPHYLAXIS
     Dosage: 25 MG, UNK
     Route: 048
  18. COLACE [Concomitant]
     Dosage: 100 MG, QD
     Route: 048
  19. TENORMIN [Concomitant]
     Dosage: 100 MG, QD
     Route: 048
  20. FISH OIL [Concomitant]
     Route: 048
  21. CARDURA [Concomitant]
     Dosage: 2 MG, QD
     Route: 048
  22. TYLENOL (CAPLET) [Concomitant]
     Dosage: 325 MG, PRN
     Route: 048
  23. MAGNESIUM OXIDE [Concomitant]
     Dosage: 400 MG, QD
     Route: 048

REACTIONS (13)
  - PETECHIAE [None]
  - DRUG INEFFECTIVE [None]
  - OEDEMA PERIPHERAL [None]
  - ASTHENIA [None]
  - PALLOR [None]
  - EPISTAXIS [None]
  - CONTUSION [None]
  - BREATH SOUNDS ABNORMAL [None]
  - SCAB [None]
  - IDIOPATHIC THROMBOCYTOPENIC PURPURA [None]
  - BLOOD BLISTER [None]
  - HAEMORRHAGE [None]
  - ECCHYMOSIS [None]
